FAERS Safety Report 12169164 (Version 1)
Quarter: 2016Q1

REPORT INFORMATION
  Report Type: Other
  Country: DE (occurrence: DE)
  Receive Date: 20160310
  Receipt Date: 20160310
  Transmission Date: 20160526
  Serious: Yes (Death, Hospitalization)
  Sender: FDA-Public Use
  Company Number: DE-MYLANLABS-2016M1009670

PATIENT

DRUGS (4)
  1. RISPERIDONE. [Suspect]
     Active Substance: RISPERIDONE
     Dosage: 3 MG, UNK
  2. TORASEMIDE [Suspect]
     Active Substance: TORSEMIDE
     Dosage: 1 DF, QD (DAILY DOSE: 1 DF DOSAGE FORM EVERY DAY)
     Dates: start: 20150114
  3. RISPERIDONE. [Suspect]
     Active Substance: RISPERIDONE
  4. TORASEMIDE [Suspect]
     Active Substance: TORSEMIDE
     Dosage: DAILY DOSE: 1 DF DOSAGE FORM EVERY DAY

REACTIONS (25)
  - Asthenia [Unknown]
  - Face oedema [Unknown]
  - Sleep disorder [Unknown]
  - Dandruff [Unknown]
  - Eczema [Unknown]
  - Lip oedema [Unknown]
  - Myocardial infarction [Fatal]
  - Urinary incontinence [Unknown]
  - Fungal infection [Unknown]
  - Oedema [Unknown]
  - Joint stiffness [Unknown]
  - Rhinorrhoea [Unknown]
  - Posture abnormal [Unknown]
  - Decreased interest [Unknown]
  - Erythema [Unknown]
  - Dyskinesia [Unknown]
  - Unresponsive to stimuli [Unknown]
  - Renal failure [Fatal]
  - Pyrexia [Fatal]
  - Muscle spasms [Unknown]
  - Oedema peripheral [Unknown]
  - Anal incontinence [Unknown]
  - Muscular weakness [Unknown]
  - Language disorder [Unknown]
  - Infection [Fatal]

NARRATIVE: CASE EVENT DATE: 2015
